FAERS Safety Report 13354685 (Version 4)
Quarter: 2017Q3

REPORT INFORMATION
  Report Type: Report from Study
  Country: CA (occurrence: CA)
  Receive Date: 20170321
  Receipt Date: 20170823
  Transmission Date: 20171127
  Serious: Yes (Other)
  Sender: FDA-Public Use
  Company Number: CA-GLAXOSMITHKLINE-CA2017GSK037087

PATIENT
  Sex: Female

DRUGS (2)
  1. PREDNISONE. [Suspect]
     Active Substance: PREDNISONE
     Indication: PRODUCT USED FOR UNKNOWN INDICATION
     Dosage: UNK
  2. SALBUTAMOL SULPHATE [Suspect]
     Active Substance: ALBUTEROL SULFATE
     Indication: PRODUCT USED FOR UNKNOWN INDICATION
     Dosage: UNK

REACTIONS (14)
  - Bursitis [Unknown]
  - Ankle operation [Unknown]
  - Stenosis [Unknown]
  - Toothache [Unknown]
  - Tooth disorder [Unknown]
  - Lung disorder [Unknown]
  - Immunodeficiency [Unknown]
  - Tendon rupture [Unknown]
  - Blood iron decreased [Unknown]
  - Pulpitis dental [Unknown]
  - Tooth infection [Unknown]
  - Pain [Unknown]
  - Coeliac disease [Unknown]
  - Fibromyalgia [Unknown]
